FAERS Safety Report 24461919 (Version 1)
Quarter: 2024Q4

REPORT INFORMATION
  Report Type: Report from Study
  Country: IT (occurrence: IT)
  Receive Date: 20241018
  Receipt Date: 20241018
  Transmission Date: 20250115
  Serious: No
  Sender: ROCHE
  Company Number: IT-ROCHE-3566701

PATIENT

DRUGS (3)
  1. RITUXIMAB [Suspect]
     Active Substance: RITUXIMAB
     Indication: Interstitial lung disease
     Route: 065
  2. RITUXIMAB [Suspect]
     Active Substance: RITUXIMAB
     Indication: Skin fibrosis
  3. RITUXIMAB [Suspect]
     Active Substance: RITUXIMAB
     Indication: Arthritis

REACTIONS (11)
  - Infection [Unknown]
  - Hypersensitivity [Unknown]
  - Inflammation [Unknown]
  - Infection reactivation [Unknown]
  - Leukopenia [Unknown]
  - Hypogammaglobulinaemia [Unknown]
  - Treatment failure [Unknown]
  - Myocarditis [Unknown]
  - COVID-19 [Unknown]
  - Hypotension [Unknown]
  - Cytopenia [Unknown]
